FAERS Safety Report 6762867-1 (Version None)
Quarter: 2010Q2

REPORT INFORMATION
  Report Type: 
  Country: None (occurrence: None)
  Receive Date: 20100608
  Receipt Date: 20100608
  Transmission Date: 20101027
  Serious: Yes (Death)
  Sender: FDA-Public Use
  Company Number: None

PATIENT
  Age: 61 Year
  Sex: Female

DRUGS (4)
  1. LINEZOLID [Suspect]
     Indication: ENTEROCOCCUS TEST POSITIVE
     Dosage: 600MG BID IV AND PO
     Route: 042
     Dates: start: 20100411, end: 20100415
  2. LINEZOLID [Suspect]
     Indication: SEPSIS
     Dosage: 600MG BID IV AND PO
     Route: 042
     Dates: start: 20100411, end: 20100415
  3. BUPROPION HCL [Suspect]
     Indication: DEPRESSION
     Dosage: BID PO
     Route: 048
     Dates: end: 20100415
  4. VENLAFAXINE [Suspect]
     Dosage: BID PO
     Route: 048
     Dates: end: 20100415

REACTIONS (2)
  - SEPSIS [None]
  - SEROTONIN SYNDROME [None]
